FAERS Safety Report 9366991 (Version 2)
Quarter: 2013Q3

REPORT INFORMATION
  Report Type: Spontaneous
  Country: JP (occurrence: JP)
  Receive Date: 20130625
  Receipt Date: 20130711
  Transmission Date: 20140515
  Serious: Yes (Other)
  Sender: FDA-Public Use
  Company Number: JP-GLAXOSMITHKLINE-B0902361A

PATIENT
  Age: 37 Year
  Sex: Male

DRUGS (2)
  1. ZOVIRAX [Suspect]
     Indication: OPHTHALMIC HERPES SIMPLEX
     Route: 031
  2. FLUOROMETHOLONE [Suspect]
     Indication: OPHTHALMIC HERPES SIMPLEX
     Route: 061

REACTIONS (6)
  - Ophthalmic herpes simplex [Unknown]
  - Herpes virus infection [Recovered/Resolved with Sequelae]
  - Foreign body sensation in eyes [Unknown]
  - Ocular hyperaemia [Unknown]
  - Corneal erosion [Unknown]
  - Corneal scar [Unknown]
